FAERS Safety Report 4847379-4 (Version None)
Quarter: 2005Q4

REPORT INFORMATION
  Report Type: 
  Country: None (occurrence: None)
  Receive Date: 20051205
  Receipt Date: 20051122
  Transmission Date: 20060501
  Serious: Yes (Other)
  Sender: FDA-Public Use
  Company Number: 2005160478

PATIENT
  Sex: Male
  Weight: 111.1313 kg

DRUGS (5)
  1. VIAGRA [Suspect]
     Indication: ERECTILE DYSFUNCTION
     Dosage: 50 MG (50 MG AS NECESSARY) ORAL
     Route: 048
  2. LIPITOR [Suspect]
     Indication: CARDIAC DISORDER
     Dosage: ORAL
     Route: 048
     Dates: start: 20040101
  3. GLYBURIDE [Suspect]
     Indication: DIABETES MELLITUS
  4. METFORMIN [Concomitant]
  5. AVANDIA [Concomitant]

REACTIONS (7)
  - BRAIN NEOPLASM [None]
  - CORONARY ARTERY OCCLUSION [None]
  - DIABETES MELLITUS INADEQUATE CONTROL [None]
  - DIABETIC VASCULAR DISORDER [None]
  - DRUG INEFFECTIVE [None]
  - HYPOAESTHESIA [None]
  - WEIGHT DECREASED [None]
